FAERS Safety Report 22071653 (Version 2)
Quarter: 2023Q2

REPORT INFORMATION
  Report Type: Spontaneous
  Country: US (occurrence: US)
  Receive Date: 20230307
  Receipt Date: 20230613
  Transmission Date: 20230722
  Serious: No
  Sender: FDA-Public Use
  Company Number: US-INCYTE CORPORATION-2023IN001300

PATIENT

DRUGS (4)
  1. OPZELURA [Suspect]
     Active Substance: RUXOLITINIB PHOSPHATE
     Indication: Eczema
     Dosage: UNK, BID
     Route: 065
     Dates: end: 20230205
  2. TACROLIMUS [Suspect]
     Active Substance: TACROLIMUS
     Indication: Eczema
     Dosage: UNK
     Route: 065
     Dates: end: 20230205
  3. HYDROCORTISONE IODOQUINOL [Concomitant]
     Active Substance: HYDROCORTISONE\IODOQUINOL
     Indication: Eczema
     Dosage: 1 PERCENT
     Route: 065
  4. CLOBETASOL [Concomitant]
     Active Substance: CLOBETASOL
     Indication: Eczema
     Dosage: UNK
     Route: 065

REACTIONS (5)
  - Erythema [Unknown]
  - Pruritus [Unknown]
  - Insomnia [Unknown]
  - Hypersensitivity [Unknown]
  - Drug ineffective [Unknown]
